FAERS Safety Report 10178132 (Version 2)
Quarter: 2017Q3

REPORT INFORMATION
  Report Type: Spontaneous
  Country: CA (occurrence: CA)
  Receive Date: 20140519
  Receipt Date: 20170720
  Transmission Date: 20171127
  Serious: Yes (Other)
  Sender: FDA-Public Use
  Company Number: CA-009507513-1405CAN008075

PATIENT
  Age: 10 Year
  Sex: Male
  Weight: 39.5 kg

DRUGS (2)
  1. ZENHALE [Suspect]
     Active Substance: FORMOTEROL FUMARATE\MOMETASONE FUROATE
     Indication: ASTHMA
     Dosage: UNK, BID, 200/5 MCG
     Route: 058
     Dates: start: 20130611, end: 201310
  2. BRICANYL [Concomitant]
     Active Substance: TERBUTALINE SULFATE

REACTIONS (4)
  - Adrenal insufficiency [Recovered/Resolved]
  - Off label use [Unknown]
  - Cortisol decreased [Recovered/Resolved]
  - Fatigue [Recovered/Resolved]

NARRATIVE: CASE EVENT DATE: 201308
